FAERS Safety Report 21747871 (Version 1)
Quarter: 2022Q4

REPORT INFORMATION
  Report Type: Spontaneous
  Country: US (occurrence: None)
  Receive Date: 20221216
  Receipt Date: 20221216
  Transmission Date: 20230112
  Serious: No
  Sender: FDA-Public Use
  Company Number: None

PATIENT
  Age: 49 Year
  Sex: Female
  Weight: 67.5 kg

DRUGS (5)
  1. MONISTAT 1 COMBINATION PACK [Suspect]
     Active Substance: MICONAZOLE NITRATE
     Indication: Pruritus
     Dosage: OTHER QUANTITY : 1 CAPSULE(S);?OTHER FREQUENCY : ONCE;?
     Route: 067
     Dates: start: 20221216, end: 20221216
  2. MONISTAT 1 COMBINATION PACK [Suspect]
     Active Substance: MICONAZOLE NITRATE
     Indication: Fungal infection
  3. METFORMIN [Concomitant]
     Active Substance: METFORMIN HYDROCHLORIDE
  4. ATORVASTATIN [Concomitant]
     Active Substance: ATORVASTATIN
  5. TRULICITY [Concomitant]
     Active Substance: DULAGLUTIDE

REACTIONS (2)
  - Vulvovaginal burning sensation [None]
  - Application site pain [None]

NARRATIVE: CASE EVENT DATE: 20221216
